FAERS Safety Report 5521496-8 (Version None)
Quarter: 2007Q4

REPORT INFORMATION
  Report Type: 
  Country: None (occurrence: None)
  Receive Date: 20071119
  Receipt Date: 20071113
  Transmission Date: 20080405
  Serious: Yes (Other)
  Sender: FDA-Public Use
  Company Number: GB-PFIZER INC-2007096077

PATIENT
  Age: 37 Year
  Sex: Female
  Weight: 60 kg

DRUGS (5)
  1. CHAMPIX [Suspect]
     Indication: SMOKING CESSATION THERAPY
     Route: 048
     Dates: start: 20070813, end: 20070925
  2. EFFEXOR [Concomitant]
     Indication: DEPRESSION
     Route: 048
     Dates: start: 20050101
  3. OLANZAPINE [Concomitant]
     Indication: ANXIETY
     Route: 048
     Dates: start: 20070615, end: 20070810
  4. OLANZAPINE [Concomitant]
     Indication: INSOMNIA
  5. ZOPICLONE [Concomitant]
     Indication: INSOMNIA
     Route: 048
     Dates: start: 20070312

REACTIONS (2)
  - DEPRESSION [None]
  - SUICIDAL IDEATION [None]
